FAERS Safety Report 9310902 (Version 2)
Quarter: 2013Q3

REPORT INFORMATION
  Report Type: Spontaneous
  Country: CA (occurrence: CA)
  Receive Date: 20130528
  Receipt Date: 20130711
  Transmission Date: 20140515
  Serious: Yes (Death, Hospitalization)
  Sender: FDA-Public Use
  Company Number: CA-AMGEN-CANSP2013037390

PATIENT
  Age: 64 Year
  Sex: Female
  Weight: 78.8 kg

DRUGS (8)
  1. XGEVA [Suspect]
     Indication: BREAST CANCER METASTATIC
     Dosage: 120 MG, Q4WK
     Route: 058
     Dates: start: 20111004, end: 201304
  2. TAXOTERE [Concomitant]
     Dosage: UNK UNK, Q3WK
     Route: 042
     Dates: start: 201105, end: 201109
  3. XELODA [Concomitant]
     Dosage: BID FOR TWO WEEKS EVERY THREE WEEK CYCLE
     Route: 048
     Dates: start: 201110, end: 201206
  4. FLUOROURACIL [Concomitant]
     Dosage: UNK UNK, Q3WK
     Route: 042
     Dates: start: 201207, end: 201208
  5. DOXORUBICIN [Concomitant]
     Dosage: UNK UNK, Q3WK
     Route: 042
     Dates: start: 201207, end: 201208
  6. CYCLOPHOSPHAMIDE [Concomitant]
     Dosage: UNK UNK, Q3WK
     Dates: start: 201207, end: 201208
  7. ERIBULIN [Concomitant]
     Dosage: UNK UNK, Q3WK
     Route: 042
     Dates: start: 201209, end: 201301
  8. VINORELBINE [Concomitant]
     Dosage: UNK UNK, QWK
     Route: 042
     Dates: start: 201302, end: 201303

REACTIONS (2)
  - Breast cancer metastatic [Fatal]
  - Metastases to liver [Fatal]
